FAERS Safety Report 7948657-2 (Version None)
Quarter: 2011Q4

REPORT INFORMATION
  Report Type: 
  Country: None (occurrence: None)
  Receive Date: 20111130
  Receipt Date: 20111130
  Transmission Date: 20120403
  Serious: No
  Sender: FDA-Public Use
  Company Number: None

PATIENT
  Age: 76 Year
  Sex: Male
  Weight: 61.234 kg

DRUGS (1)
  1. VIAGRA [Suspect]
     Indication: PROSTATE CANCER
     Dosage: 25 TO 75 MG
     Route: 048
     Dates: start: 20111111, end: 20111123

REACTIONS (2)
  - PRODUCT SUBSTITUTION ISSUE [None]
  - DRUG EFFECT DECREASED [None]
